FAERS Safety Report 5088558-3 (Version None)
Quarter: 2006Q3

REPORT INFORMATION
  Report Type: 
  Country: None (occurrence: None)
  Receive Date: 20060801
  Receipt Date: 20060403
  Transmission Date: 20061208
  Serious: Yes (Life-Threatening)
  Sender: FDA-Public Use
  Company Number: OMPQ-PR-0604S-0221

PATIENT
  Age: 85 Year
  Sex: Male

DRUGS (1)
  1. OMNIPAQUE 240 [Suspect]
     Indication: HEADACHE
     Dosage: I.V.
     Route: 042
     Dates: start: 20060119, end: 20060319

REACTIONS (1)
  - ANAPHYLACTOID SHOCK [None]
